FAERS Safety Report 9171256 (Version 1)
Quarter: 2013Q1

REPORT INFORMATION
  Report Type: Spontaneous
  Country: SK (occurrence: SK)
  Receive Date: 20130319
  Receipt Date: 20130319
  Transmission Date: 20140127
  Serious: Yes (Other)
  Sender: FDA-Public Use
  Company Number: SK-ROCHE-1203636

PATIENT
  Sex: Female

DRUGS (4)
  1. XOLAIR [Suspect]
     Indication: ASTHMA
     Route: 058
     Dates: start: 20080827, end: 20130218
  2. ZODAC [Concomitant]
  3. SYMBICORT [Concomitant]
  4. VENTOLIN [Concomitant]

REACTIONS (1)
  - Aphthous stomatitis [Not Recovered/Not Resolved]
